FAERS Safety Report 9543289 (Version 1)
Quarter: 2013Q2

REPORT INFORMATION
  Report Type: Spontaneous
  Country: US (occurrence: None)
  Receive Date: 20130524
  Receipt Date: 20130524
  Transmission Date: 20140414
  Serious: No
  Sender: FDA-Public Use
  Company Number: PHEH2013US002875

PATIENT
  Sex: Female
  Weight: 59 kg

DRUGS (20)
  1. GILENYA (FINGOLIMOD) CAPSULE [Suspect]
     Route: 048
     Dates: end: 201205
  2. COD LIVER OIL (COD-LIVER OIL) [Concomitant]
  3. EFFEXOR (VENLAFAXINE HYDROCHLORIDE) UNKNOWN [Concomitant]
  4. LEVETIRACETAM (LEVETIRACETAM) [Concomitant]
  5. LIPITPOR (ATORVASTATIN CALCIUM) [Concomitant]
  6. FAMOTIDINE (FAMOTIDINE) [Concomitant]
  7. NITROFURATOIN MONO/MAC (NITROFURANTOIN) [Concomitant]
  8. ACTONEL (RISEDRONATE SODIUM) [Concomitant]
  9. OXYBUTYNIN (OXYBUTYNIN) [Concomitant]
  10. LEVOTHYROXIN (LEOVTHYROXINE SODIUM) [Concomitant]
  11. ESTER-C (CALCIUM ASCORBATE) [Concomitant]
  12. FLAXSEED OIL (LINUM USITATISSIMUM SEED OIL) [Concomitant]
  13. VITAMIN D3 (COLECALCIFEROL) [Concomitant]
  14. FISH OIL (FISH OIL) [Concomitant]
  15. PROVIGIL (MODAFINIL) [Concomitant]
  16. OCUVITE LUTEIN (ASCORVIC ACID, CUPRIC OXIDE, TOCOPHERYL ACETATE, XANTOFYL, ZINC OXIDE) [Concomitant]
  17. MULTIVIT (VITAMINS NOS) [Concomitant]
  18. DONEPEZIL (DONEPEZIL) [Concomitant]
  19. OMEGA 3 (FISH OIL) [Concomitant]
  20. ASPIRIN LOW (ACETYLSALICYLIC ACID) [Concomitant]

REACTIONS (1)
  - Eye disorder [None]
